FAERS Safety Report 15277090 (Version 5)
Quarter: 2018Q4

REPORT INFORMATION
  Report Type: Report from Study
  Country: DE (occurrence: DE)
  Receive Date: 20180814
  Receipt Date: 20181217
  Transmission Date: 20190204
  Serious: Yes (Hospitalization)
  Sender: FDA-Public Use
  Company Number: DE-SA-2018SA012201

PATIENT
  Age: 25 Year
  Sex: Female
  Weight: 96 kg

DRUGS (28)
  1. SIBILLA [Concomitant]
     Active Substance: DIENOGEST\ETHINYL ESTRADIOL
     Indication: PROPHYLAXIS
     Dosage: 2 MG,UNK
     Route: 048
     Dates: start: 2013
  2. PARACETAMOL [Concomitant]
     Active Substance: ACETAMINOPHEN
     Dosage: 1000 MG, UNK
     Route: 048
     Dates: start: 20171127, end: 20171129
  3. VENLAFAXINE [Concomitant]
     Active Substance: VENLAFAXINE HYDROCHLORIDE
     Indication: DEPRESSION
     Dosage: 75 MG
     Route: 048
     Dates: start: 20160803
  4. BISOPROLOL [Concomitant]
     Active Substance: BISOPROLOL
     Indication: PROPHYLAXIS
  5. ALEMTUZUMAB [Suspect]
     Active Substance: ALEMTUZUMAB
     Dosage: UNK UNK,UNK
     Route: 041
     Dates: start: 20161121, end: 20161123
  6. ALEMTUZUMAB [Suspect]
     Active Substance: ALEMTUZUMAB
     Dosage: 12 MG,UNK
     Route: 041
     Dates: start: 20171127, end: 20171129
  7. METHYLPREDNISOLONE. [Concomitant]
     Active Substance: METHYLPREDNISOLONE
     Dosage: UNK UNK,UNK
     Route: 042
     Dates: start: 20171127, end: 20171129
  8. PREDNISOLONE. [Concomitant]
     Active Substance: PREDNISOLONE
     Dosage: 50 MG,UNK
     Route: 048
     Dates: start: 20171209, end: 20171211
  9. CETIRIZINE [Concomitant]
     Active Substance: CETIRIZINE HYDROCHLORIDE
     Indication: PROPHYLAXIS
     Dosage: 10 MG,UNK
     Route: 048
     Dates: start: 20171127, end: 20171227
  10. CALCIUM [Concomitant]
     Active Substance: CALCIUM
     Indication: PROPHYLAXIS
     Dosage: 500 MG, UNK
     Dates: start: 20180102
  11. PREDNISOLONE. [Concomitant]
     Active Substance: PREDNISOLONE
     Dosage: 100 MG,UNK
     Route: 048
     Dates: start: 20171203, end: 20171205
  12. TAVEGIL [CLEMASTINE] [Concomitant]
     Dosage: 2 MG, UNK
     Route: 042
     Dates: start: 20171127, end: 20171129
  13. ALEMTUZUMAB [Suspect]
     Active Substance: ALEMTUZUMAB
     Indication: MULTIPLE SCLEROSIS RELAPSE
     Dosage: UNK UNK,UNK
     Route: 041
     Dates: start: 20151123, end: 20151130
  14. PREDNISOLONE. [Concomitant]
     Active Substance: PREDNISOLONE
     Dosage: 150 MG,UNK
     Route: 048
     Dates: start: 20171130, end: 20171202
  15. PREDNISOLONE. [Concomitant]
     Active Substance: PREDNISOLONE
     Dosage: 25 MG,UNK
     Route: 048
     Dates: start: 20171212, end: 20171214
  16. PREDNISOLONE. [Concomitant]
     Active Substance: PREDNISOLONE
     Dosage: 12.5 MG,UNK
     Route: 048
     Dates: start: 20171215, end: 20171217
  17. ACICLOVIR [Concomitant]
     Active Substance: ACYCLOVIR
     Indication: PROPHYLAXIS
     Dosage: 200 MG,BID
     Route: 048
     Dates: start: 20171127, end: 20171227
  18. METHYLPREDNISOLONE. [Concomitant]
     Active Substance: METHYLPREDNISOLONE
     Dosage: UNK
  19. LEVOTHYROXINE SODIUM. [Concomitant]
     Active Substance: LEVOTHYROXINE SODIUM
     Dosage: 150 UG,UNK
     Route: 048
     Dates: start: 20171228
  20. BISOPROLOL [Concomitant]
     Active Substance: BISOPROLOL
     Indication: BASEDOW^S DISEASE
     Dosage: 1.25 MG
     Route: 048
     Dates: start: 20170120
  21. RANITIDINE. [Concomitant]
     Active Substance: RANITIDINE
     Dosage: UNK UNK,UNK
     Route: 042
     Dates: start: 20171127, end: 20171129
  22. PREDNISOLONE. [Concomitant]
     Active Substance: PREDNISOLONE
     Dosage: 75 MG,UNK
     Route: 048
     Dates: start: 20171206, end: 20171208
  23. THIAMAZOL [Concomitant]
     Active Substance: METHIMAZOLE
     Indication: TREATMENT NONCOMPLIANCE
     Dosage: 40 MG,UNK
     Route: 048
     Dates: start: 20170906, end: 20171227
  24. THIAMAZOL [Concomitant]
     Active Substance: METHIMAZOLE
     Indication: BASEDOW^S DISEASE
     Dosage: 20 UNK
     Route: 048
     Dates: start: 20170120
  25. CLEMASTINE [Concomitant]
     Active Substance: CLEMASTINE
     Dosage: UNK UNK,UNK
     Route: 042
     Dates: start: 20171127, end: 20171129
  26. CALCITRIOL. [Concomitant]
     Active Substance: CALCITRIOL
     Indication: PROPHYLAXIS
     Dosage: 0.5 MG, UNK
     Route: 048
     Dates: start: 20180202
  27. PREDNISOLONE. [Concomitant]
     Active Substance: PREDNISOLONE
     Indication: PROPHYLAXIS
     Dosage: 175 MG,UNK
     Route: 048
     Dates: start: 20171127, end: 20171129
  28. CIPROFLOXACIN. [Concomitant]
     Active Substance: CIPROFLOXACIN
     Indication: PROPHYLAXIS
     Dosage: 250 MG
     Route: 048
     Dates: start: 20171121, end: 20171122

REACTIONS (6)
  - Thyroidectomy [Recovered/Resolved]
  - Calcium deficiency [Not Recovered/Not Resolved]
  - Muscle spasms [Recovered/Resolved]
  - Hypothyroidism [Not Recovered/Not Resolved]
  - Nasopharyngitis [Not Recovered/Not Resolved]
  - Alopecia [Not Recovered/Not Resolved]

NARRATIVE: CASE EVENT DATE: 20171228
